FAERS Safety Report 9032359 (Version 2)
Quarter: 2013Q1

REPORT INFORMATION
  Report Type: Spontaneous
  Country: CL (occurrence: CL)
  Receive Date: 20130125
  Receipt Date: 20130208
  Transmission Date: 20140127
  Serious: Yes (Other)
  Sender: FDA-Public Use
  Company Number: CL-PFIZER INC-2013026321

PATIENT
  Sex: Female

DRUGS (3)
  1. AZULFIDINE [Suspect]
     Indication: PSORIATIC ARTHROPATHY
     Dosage: 500 MG, UNK
     Dates: start: 2007, end: 2011
  2. PREDNISONE [Concomitant]
     Dosage: UNK
  3. CELEBRA [Concomitant]
     Indication: ANALGESIC THERAPY
     Dosage: 200 MG, UNK

REACTIONS (2)
  - Hepatitis [Not Recovered/Not Resolved]
  - Off label use [Recovered/Resolved]
